FAERS Safety Report 7518917-8 (Version None)
Quarter: 2011Q2

REPORT INFORMATION
  Report Type: 
  Country: None (occurrence: None)
  Receive Date: 20110602
  Receipt Date: 20110527
  Transmission Date: 20111010
  Serious: Yes (Death, Life-Threatening, Hospitalization)
  Sender: FDA-Public Use
  Company Number: IT-AMGEN-UK258705

PATIENT
  Age: 61 Year
  Sex: Female

DRUGS (6)
  1. FLUOROURACIL [Concomitant]
     Dosage: 1000 MG/M2, QD
     Route: 042
     Dates: start: 20071213
  2. PANADEINE CO [Concomitant]
     Dosage: UNK UNK, PRN
     Dates: start: 20071216
  3. PANITUMUMAB [Suspect]
     Indication: SQUAMOUS CELL CARCINOMA
     Dosage: 315 MG, Q3WK
     Route: 042
     Dates: start: 20071213
  4. DURAGESIC-100 [Concomitant]
     Dosage: 75 A?G, QH
     Route: 062
     Dates: start: 20071216
  5. CISPLATIN [Concomitant]
     Dosage: 100 MG/M2, QD
     Route: 042
     Dates: start: 20071213
  6. RANITIDINE [Concomitant]
     Dosage: 300 MG, QD
     Dates: start: 20071216

REACTIONS (6)
  - STOMATITIS [None]
  - NEUTROPENIC SEPSIS [None]
  - DIHYDROPYRIMIDINE DEHYDROGENASE DEFICIENCY [None]
  - HYPOKALAEMIA [None]
  - THROMBOCYTOPENIA [None]
  - DIARRHOEA [None]
